FAERS Safety Report 15236178 (Version 1)
Quarter: 2018Q3

REPORT INFORMATION
  Report Type: Spontaneous
  Country: US (occurrence: US)
  Receive Date: 20180803
  Receipt Date: 20180803
  Transmission Date: 20181010
  Serious: Yes (Other)
  Sender: FDA-Public Use
  Company Number: US-AMGEN-USASP2018105335

PATIENT
  Age: 83 Year
  Sex: Male
  Weight: 68.27 kg

DRUGS (4)
  1. PROCRIT [Suspect]
     Active Substance: ERYTHROPOIETIN
     Indication: HEREDITARY HAEMOCHROMATOSIS
     Dosage: 40 MG, 4 TIMES A MONTH
     Route: 058
     Dates: start: 20140925, end: 2015
  2. PROCRIT [Suspect]
     Active Substance: ERYTHROPOIETIN
     Dosage: 40 MG, 3 TIMES A MONTH
     Route: 058
     Dates: start: 2015, end: 2016
  3. PROCRIT [Suspect]
     Active Substance: ERYTHROPOIETIN
     Dosage: 40 MG, ONCE A MONTH
     Route: 058
     Dates: start: 2017, end: 201804
  4. PROCRIT [Suspect]
     Active Substance: ERYTHROPOIETIN
     Dosage: 40 MG, 2 TIMES A MONTH
     Route: 058
     Dates: start: 2016, end: 2017

REACTIONS (11)
  - Fatigue [Recovering/Resolving]
  - Aphasia [Recovering/Resolving]
  - Irritability [Recovering/Resolving]
  - Dizziness [Recovering/Resolving]
  - Abnormal loss of weight [Not Recovered/Not Resolved]
  - Mental impairment [Recovering/Resolving]
  - Memory impairment [Recovering/Resolving]
  - Myelodysplastic syndrome [Not Recovered/Not Resolved]
  - Deafness [Not Recovered/Not Resolved]
  - Drug ineffective [Not Recovered/Not Resolved]
  - Anti-erythropoietin antibody positive [Not Recovered/Not Resolved]

NARRATIVE: CASE EVENT DATE: 201409
